FAERS Safety Report 9887836 (Version 2)
Quarter: 2014Q1

REPORT INFORMATION
  Report Type: Report from Study
  Country: NL (occurrence: NL)
  Receive Date: 20140211
  Receipt Date: 20140313
  Transmission Date: 20141002
  Serious: Yes (Hospitalization)
  Sender: FDA-Public Use
  Company Number: PHHY2014NL015291

PATIENT
  Age: 57 Year
  Sex: Male

DRUGS (7)
  1. NILOTINIB [Suspect]
     Indication: CHRONIC GRAFT VERSUS HOST DISEASE
     Dosage: 600 MG, DAILY
     Route: 048
     Dates: start: 20140113
  2. NILOTINIB [Suspect]
     Indication: OFF LABEL USE
  3. RITUXIMAB [Suspect]
     Indication: CHRONIC GRAFT VERSUS HOST DISEASE
     Dosage: 375 MG/M2, FOUR TIMES WEEKLY
     Route: 042
     Dates: start: 20131210, end: 20140103
  4. SULFAMETHOXAZOLE W/TRIMETHOPRIM [Concomitant]
     Dosage: 480 MG
  5. CICLOSPORIN [Concomitant]
     Indication: IMMUNOSUPPRESSION
     Dosage: 200 MG
     Route: 048
  6. PREDNISOLONE [Concomitant]
     Indication: CHRONIC GRAFT VERSUS HOST DISEASE
     Dosage: 12 MG
  7. VALACICLOVIR [Concomitant]

REACTIONS (3)
  - Plasma cell myeloma [Unknown]
  - Second primary malignancy [Unknown]
  - Arthralgia [Unknown]
